FAERS Safety Report 9820912 (Version 1)
Quarter: 2014Q1

REPORT INFORMATION
  Report Type: Spontaneous
  Country: US (occurrence: None)
  Receive Date: 20140114
  Receipt Date: 20140114
  Transmission Date: 20141002
  Serious: Yes (Other)
  Sender: FDA-Public Use
  Company Number: None

PATIENT
  Age: 57 Year
  Sex: Male
  Weight: 81.65 kg

DRUGS (1)
  1. TAMSULOSIN [Suspect]
     Indication: BENIGN PROSTATIC HYPERPLASIA
     Dosage: 1 ADAY TAKEN BY MOUTH
     Route: 048
     Dates: start: 20040109, end: 20140110

REACTIONS (7)
  - Dizziness [None]
  - Ocular hyperaemia [None]
  - Dysuria [None]
  - Erythema of eyelid [None]
  - Feeling hot [None]
  - Heart rate increased [None]
  - Eye swelling [None]
